FAERS Safety Report 8130529-4 (Version None)
Quarter: 2012Q1

REPORT INFORMATION
  Report Type: 
  Country: None (occurrence: None)
  Receive Date: 20120210
  Receipt Date: 20120203
  Transmission Date: 20120608
  Serious: Yes (Other)
  Sender: FDA-Public Use
  Company Number: US-ASTRAZENECA-2010SE32525

PATIENT
  Age: 53 Year
  Sex: Male

DRUGS (1)
  1. NEXIUM [Suspect]
     Route: 048

REACTIONS (12)
  - SLEEP DISORDER DUE TO A GENERAL MEDICAL CONDITION [None]
  - WRONG DRUG ADMINISTERED [None]
  - VOMITING [None]
  - DRUG DOSE OMISSION [None]
  - ABDOMINAL DISCOMFORT [None]
  - REGURGITATION [None]
  - CHOKING [None]
  - GASTROOESOPHAGEAL REFLUX DISEASE [None]
  - HAEMATOCHEZIA [None]
  - GASTRIC PERFORATION [None]
  - NAUSEA [None]
  - MALAISE [None]
